FAERS Safety Report 5936031-X (Version None)
Quarter: 2008Q4

REPORT INFORMATION
  Report Type: 
  Country: None (occurrence: None)
  Receive Date: 20081028
  Receipt Date: 20081024
  Transmission Date: 20090506
  Serious: Yes (Death)
  Sender: FDA-Public Use
  Company Number: 2008SP015372

PATIENT
  Age: 67 Year
  Sex: Female
  Weight: 57 kg

DRUGS (8)
  1. PEG-INTRON [Suspect]
     Indication: HEPATITIS C
     Dosage: 50 MCG; QW; SC
     Route: 058
     Dates: start: 20080128, end: 20080616
  2. REBETOL [Suspect]
     Indication: HEPATITIS C
     Dosage: 600 MG; QD; PO, 400 MG; QD; PO
     Route: 048
     Dates: start: 20080128, end: 20080224
  3. REBETOL [Suspect]
     Indication: HEPATITIS C
     Dosage: 600 MG; QD; PO, 400 MG; QD; PO
     Route: 048
     Dates: start: 20080225, end: 20080620
  4. LIVACT [Concomitant]
  5. PORTOLAC [Concomitant]
  6. PROMAC [Concomitant]
  7. VOLTAREN [Concomitant]
  8. JUZEN-TAIHO-TO [Concomitant]

REACTIONS (8)
  - CHEST PAIN [None]
  - COUGH [None]
  - HAEMATEMESIS [None]
  - HAEMOPTYSIS [None]
  - LOBAR PNEUMONIA [None]
  - LUNG INFILTRATION [None]
  - PULMONARY HAEMORRHAGE [None]
  - RESPIRATORY ARREST [None]
